FAERS Safety Report 25776603 (Version 1)
Quarter: 2025Q3

REPORT INFORMATION
  Report Type: Spontaneous
  Country: US (occurrence: US)
  Receive Date: 20250909
  Receipt Date: 20250909
  Transmission Date: 20251021
  Serious: No
  Sender: DOMPE FARMACEUTICI
  Company Number: US-FARMAPROD-202503-0756

PATIENT
  Age: 64 Year
  Sex: Female
  Weight: 73 kg

DRUGS (25)
  1. OXERVATE [Suspect]
     Active Substance: CENEGERMIN-BKBJ
     Indication: Neurotrophic keratopathy
     Route: 047
     Dates: start: 20250113, end: 20250412
  2. CORTICOTROPIN [Suspect]
     Active Substance: CORTICOTROPIN
     Indication: Arthropathy
     Dosage: VIAL
     Route: 058
     Dates: start: 202408, end: 20250113
  3. CORTICOTROPIN [Suspect]
     Active Substance: CORTICOTROPIN
     Dosage: VIAL
     Route: 058
     Dates: start: 20250320
  4. RETAINE MGD [Concomitant]
     Active Substance: LIGHT MINERAL OIL\MINERAL OIL
     Indication: Eye disorder
  5. ALIGN [Concomitant]
     Active Substance: BIFIDOBACTERIUM LONGUM SUBSP. INFANTIS
  6. VITAMIN D3-VITAMIN K2 [Concomitant]
  7. VITAMINS [Concomitant]
     Active Substance: VITAMINS
  8. FISH OIL [Concomitant]
     Active Substance: FISH OIL
  9. FAMOTIDINE [Concomitant]
     Active Substance: FAMOTIDINE
     Indication: Gastrooesophageal reflux disease
  10. METHOTREXATE [Concomitant]
     Active Substance: METHOTREXATE
  11. ATORVASTATIN CALCIUM [Concomitant]
     Active Substance: ATORVASTATIN CALCIUM
  12. DULOXETINE HYDROCHLORIDE [Concomitant]
     Active Substance: DULOXETINE HYDROCHLORIDE
  13. KLONOPIN [Concomitant]
     Active Substance: CLONAZEPAM
  14. LAMICTAL XR [Concomitant]
     Active Substance: LAMOTRIGINE
  15. SYNTHROID [Concomitant]
     Active Substance: LEVOTHYROXINE SODIUM
  16. ARTHOCIN JOINT SUPPLEMENT [Concomitant]
  17. FOLIC ACIDD [Concomitant]
  18. JUBLIA [Concomitant]
     Active Substance: EFINACONAZOLE
     Indication: Fungal foot infection
  19. VITAMIN A [Concomitant]
     Active Substance: VITAMIN A
  20. SYNTHROID [Concomitant]
     Active Substance: LEVOTHYROXINE SODIUM
  21. FISH OIL [Concomitant]
     Active Substance: FISH OIL
  22. ACTHAR [Concomitant]
     Active Substance: CORTICOTROPIN
  23. PREDNISONE [Concomitant]
     Active Substance: PREDNISONE
     Dates: start: 20250307
  24. BENADRYL [Concomitant]
     Active Substance: DIPHENHYDRAMINE HYDROCHLORIDE
  25. ARTHROSIN [Concomitant]

REACTIONS (12)
  - Lacrimation increased [Unknown]
  - Ocular hyperaemia [Unknown]
  - Eye swelling [Unknown]
  - Eye pain [Unknown]
  - Thirst [Unknown]
  - Abdominal pain upper [Unknown]
  - Gastrooesophageal reflux disease [Unknown]
  - Muscle atrophy [Unknown]
  - Blood creatine phosphokinase decreased [Unknown]
  - Rash [Unknown]
  - Disease progression [Unknown]
  - Therapy interrupted [Unknown]

NARRATIVE: CASE EVENT DATE: 20250124
